FAERS Safety Report 7944571-7 (Version None)
Quarter: 2011Q4

REPORT INFORMATION
  Report Type: 
  Country: None (occurrence: None)
  Receive Date: 20111122
  Receipt Date: 20110718
  Transmission Date: 20120403
  Serious: Yes (Other)
  Sender: FDA-Public Use
  Company Number: PHHY2010US89456

PATIENT
  Age: 45 Year
  Sex: Female

DRUGS (5)
  1. GILENYA [Suspect]
     Indication: MULTIPLE SCLEROSIS
     Dosage: 0.5 MG, QD, ORAL
     Route: 048
     Dates: start: 20101228
  2. SUMATRIPTAN SUCCINATE (IMITREX) [Concomitant]
  3. METFORMIN HCL [Concomitant]
  4. ZANAFLEX [Concomitant]
  5. ZOLOFT [Concomitant]

REACTIONS (4)
  - ANGER [None]
  - HEART RATE DECREASED [None]
  - FEELING ABNORMAL [None]
  - ANXIETY [None]
